FAERS Safety Report 5377720-8 (Version None)
Quarter: 2007Q3

REPORT INFORMATION
  Report Type: 
  Country: None (occurrence: None)
  Receive Date: 20070703
  Receipt Date: 20070702
  Transmission Date: 20080115
  Serious: Yes (Other)
  Sender: FDA-Public Use
  Company Number: DE-BOEHRINGER INGELHEIM PHARMACEUTICALS, INC.-2007-DE-03907DE

PATIENT
  Sex: Female

DRUGS (3)
  1. SIFROL 0,7 MG [Suspect]
     Route: 048
  2. MADOPAR [Suspect]
     Route: 048
  3. PK-MERZ [Suspect]
     Route: 048

REACTIONS (6)
  - DRUG ABUSER [None]
  - EYE IRRITATION [None]
  - EYE MOVEMENT DISORDER [None]
  - OVERDOSE [None]
  - SOMNOLENCE [None]
  - SUICIDE ATTEMPT [None]
